FAERS Safety Report 17770011 (Version 1)
Quarter: 2020Q2

REPORT INFORMATION
  Report Type: Spontaneous
  Country: CN (occurrence: CN)
  Receive Date: 20200512
  Receipt Date: 20200512
  Transmission Date: 20200714
  Serious: Yes (Hospitalization, Other)
  Sender: FDA-Public Use
  Company Number: CN-STRIDES ARCOLAB LIMITED-2020SP005593

PATIENT
  Age: 59 Year
  Sex: Female

DRUGS (7)
  1. METFORMIN [Interacting]
     Active Substance: METFORMIN HYDROCHLORIDE
     Indication: TYPE 2 DIABETES MELLITUS
     Dosage: UNK
     Route: 065
  2. ACARBOSE. [Suspect]
     Active Substance: ACARBOSE
     Indication: TYPE 2 DIABETES MELLITUS
     Dosage: UNK
     Route: 065
  3. CLARITHROMYCIN. [Interacting]
     Active Substance: CLARITHROMYCIN
     Indication: HELICOBACTER INFECTION
     Dosage: 500 MILLIGRAM, EVERY 12 HRS
     Route: 065
  4. COLLOIDAL BISMUTH PECTIN [Concomitant]
     Active Substance: BISMUTH
     Indication: HELICOBACTER INFECTION
     Dosage: 200 MILLIGRAM, EVERY 12 HRS
     Route: 065
  5. OMEPRAZOLE. [Concomitant]
     Active Substance: OMEPRAZOLE
     Indication: HELICOBACTER INFECTION
     Dosage: 20 MILLIGRAM, EVERY 12 HRS
     Route: 065
  6. GLICLAZIDE [Interacting]
     Active Substance: GLICLAZIDE
     Indication: TYPE 2 DIABETES MELLITUS
     Dosage: UNK
     Route: 065
  7. AMOXICILLIN. [Concomitant]
     Active Substance: AMOXICILLIN
     Indication: HELICOBACTER INFECTION
     Dosage: 1000 MILLIGRAM, EVERY 12 HRS
     Route: 065

REACTIONS (4)
  - Hypoglycaemia [Recovered/Resolved]
  - Muscle spasms [Unknown]
  - Drug interaction [Unknown]
  - Cold sweat [Unknown]
